FAERS Safety Report 15673893 (Version 2)
Quarter: 2018Q4

REPORT INFORMATION
  Report Type: Spontaneous
  Country: US (occurrence: US)
  Receive Date: 20181129
  Receipt Date: 20181220
  Transmission Date: 20190205
  Serious: Yes (Other)
  Sender: FDA-Public Use
  Company Number: US-GILEAD-2018-0377332

PATIENT
  Age: 57 Year
  Sex: Male

DRUGS (5)
  1. LEVETIRACETAM. [Concomitant]
     Active Substance: LEVETIRACETAM
     Dosage: 1 G
     Route: 042
     Dates: start: 20180831
  2. YESCARTA [Suspect]
     Active Substance: AXICABTAGENE CILOLEUCEL
     Indication: DIFFUSE LARGE B-CELL LYMPHOMA RECURRENT
     Dosage: UNK, SINGLE
     Route: 042
     Dates: start: 20180827, end: 20180827
  3. CYCLOPHOSPHAMIDE. [Concomitant]
     Active Substance: CYCLOPHOSPHAMIDE
     Indication: BONE MARROW CONDITIONING REGIMEN
     Dosage: UNK
     Route: 065
     Dates: start: 20180822, end: 20180824
  4. FLUDARABINE [Concomitant]
     Active Substance: FLUDARABINE PHOSPHATE
     Indication: BONE MARROW CONDITIONING REGIMEN
     Dosage: 54 MG
     Route: 065
     Dates: start: 20180822, end: 20180824
  5. LEVETIRACETAM. [Concomitant]
     Active Substance: LEVETIRACETAM
     Dosage: 750 MG
     Dates: start: 20180826, end: 20181011

REACTIONS (10)
  - Acute kidney injury [Recovered/Resolved]
  - Encephalopathy [Recovered/Resolved]
  - Lung disorder [Unknown]
  - Tachycardia [Recovered/Resolved]
  - Seizure [Recovered/Resolved]
  - Neutropenia [Not Recovered/Not Resolved]
  - Dehydration [Unknown]
  - Cytopenia [Unknown]
  - Cytokine release syndrome [Recovered/Resolved]
  - Pyrexia [Recovered/Resolved]

NARRATIVE: CASE EVENT DATE: 2018
